FAERS Safety Report 4457494-5 (Version None)
Quarter: 2004Q3

REPORT INFORMATION
  Report Type: 
  Country: None (occurrence: None)
  Receive Date: 20040921
  Receipt Date: 20040909
  Transmission Date: 20050211
  Serious: Yes (Life-Threatening, Hospitalization)
  Sender: FDA-Public Use
  Company Number: A0514861A

PATIENT
  Age: 27 Year
  Weight: 64.8644 kg

DRUGS (1)
  1. FLOLAN [Suspect]
     Indication: PULMONARY HYPERTENSION
     Dosage: SEE DOSAGE TEXT / INTRAVENOUS
     Route: 042
     Dates: start: 20010401

REACTIONS (5)
  - CELLULITIS [None]
  - CENTRAL LINE INFECTION [None]
  - DYSPNOEA [None]
  - FLUSHING [None]
  - HYPOTENSION [None]
